FAERS Safety Report 5780221-6 (Version None)
Quarter: 2008Q2

REPORT INFORMATION
  Report Type: 
  Country: None (occurrence: None)
  Receive Date: 20080620
  Receipt Date: 20080610
  Transmission Date: 20081010
  Serious: Yes (Other)
  Sender: FDA-Public Use
  Company Number: PHEH2008US05251

PATIENT
  Sex: Female

DRUGS (1)
  1. RECLAST [Suspect]
     Dosage: UNK
     Dates: start: 20080201

REACTIONS (7)
  - ARTHRALGIA [None]
  - ASTHMA [None]
  - GAIT DISTURBANCE [None]
  - HAEMATOCHEZIA [None]
  - INFLUENZA LIKE ILLNESS [None]
  - PAIN [None]
  - PAIN IN EXTREMITY [None]
